FAERS Safety Report 4636729-X (Version None)
Quarter: 2005Q2

REPORT INFORMATION
  Report Type: 
  Country: None (occurrence: None)
  Receive Date: 20050414
  Receipt Date: 20050404
  Transmission Date: 20051028
  Serious: Yes (Hospitalization)
  Sender: FDA-Public Use
  Company Number: 2005027281

PATIENT
  Age: 45 Year
  Sex: Male

DRUGS (1)
  1. SULPERAZON (SULBACTAM, CEFOPERAZONE) [Suspect]
     Indication: PANCREATITIS CHRONIC
     Dosage: 1 GRAM (1 GRAM, QD), INTRAVENOUS
     Route: 042
     Dates: start: 20050117, end: 20050119

REACTIONS (4)
  - CHRONIC TONSILLITIS [None]
  - EXANTHEM [None]
  - PSORIASIS [None]
  - STREPTOCOCCAL INFECTION [None]
